FAERS Safety Report 9071981 (Version 2)
Quarter: 2013Q1

REPORT INFORMATION
  Report Type: Spontaneous
  Country: CN (occurrence: CN)
  Receive Date: 20130129
  Receipt Date: 20130222
  Transmission Date: 20140127
  Serious: Yes (Other)
  Sender: FDA-Public Use
  Company Number: CN-ROCHE-1184956

PATIENT
  Sex: 0

DRUGS (2)
  1. XELODA [Suspect]
     Indication: GASTROINTESTINAL CARCINOMA
     Route: 065
  2. OXALIPLATIN [Concomitant]
     Indication: GASTROINTESTINAL CARCINOMA

REACTIONS (2)
  - Diarrhoea [Recovering/Resolving]
  - Glossitis [Recovering/Resolving]
